FAERS Safety Report 11492942 (Version 1)
Quarter: 2015Q3

REPORT INFORMATION
  Report Type: Spontaneous
  Country: US (occurrence: None)
  Receive Date: 20150910
  Receipt Date: 20150910
  Transmission Date: 20151125
  Serious: Yes (Other)
  Sender: FDA-Public Use
  Company Number: None

PATIENT
  Age: 66 Year
  Sex: Male
  Weight: 95.71 kg

DRUGS (3)
  1. METFORMIN [Concomitant]
     Active Substance: METFORMIN HYDROCHLORIDE
  2. FARXIGA [Suspect]
     Active Substance: DAPAGLIFLOZIN PROPANEDIOL
     Indication: TYPE 2 DIABETES MELLITUS
     Dosage: 1 PILL
     Route: 048
     Dates: start: 20150901, end: 20150908
  3. ASPIRIN. [Concomitant]
     Active Substance: ASPIRIN

REACTIONS (9)
  - Asthenia [None]
  - Polydipsia [None]
  - Dry skin [None]
  - Penile pain [None]
  - Dizziness [None]
  - Penile swelling [None]
  - Therapy cessation [None]
  - Pollakiuria [None]
  - Penile erythema [None]

NARRATIVE: CASE EVENT DATE: 20150908
